FAERS Safety Report 7203558-2 (Version None)
Quarter: 2010Q4

REPORT INFORMATION
  Report Type: 
  Country: None (occurrence: None)
  Receive Date: 20101230
  Receipt Date: 20101220
  Transmission Date: 20110411
  Serious: Yes (Hospitalization)
  Sender: FDA-Public Use
  Company Number: NL-KINGPHARMUSA00001-K201001529

PATIENT
  Age: 81 Year
  Sex: Male

DRUGS (4)
  1. THALITONE [Suspect]
     Dosage: 12.5 MG, QD
     Route: 048
  2. LISINOPRIL [Suspect]
     Dosage: 20 MG, QD
     Route: 048
  3. LISINOPRIL [Suspect]
     Dosage: 40 MG, QD
     Route: 048
  4. DICLOFENAC [Suspect]
     Dosage: 50 MG, TID
     Route: 048

REACTIONS (5)
  - ABDOMINAL PAIN [None]
  - DEHYDRATION [None]
  - DIARRHOEA [None]
  - GASTROENTERITIS [None]
  - RENAL FAILURE ACUTE [None]
